FAERS Safety Report 15696286 (Version 1)
Quarter: 2018Q4

REPORT INFORMATION
  Report Type: Report from Study
  Country: US (occurrence: US)
  Receive Date: 20181206
  Receipt Date: 20181206
  Transmission Date: 20190205
  Serious: Yes (Hospitalization)
  Sender: FDA-Public Use
  Company Number: US-ADAMAS PHARMA, LLC-2018ADA01790

PATIENT
  Sex: Male
  Weight: 90.25 kg

DRUGS (15)
  1. ENTACAPONE. [Concomitant]
     Active Substance: ENTACAPONE
  2. FLUOXETINE [Concomitant]
     Active Substance: FLUOXETINE HYDROCHLORIDE
  3. PRAMIPEXOLE. [Concomitant]
     Active Substance: PRAMIPEXOLE
  4. GOCOVRI [Suspect]
     Active Substance: AMANTADINE
     Indication: DYSKINESIA
     Dosage: 137 MG, 1X/DAY IN THE PM
     Route: 048
     Dates: start: 20180630, end: 20180706
  5. GOCOVRI [Suspect]
     Active Substance: AMANTADINE
     Indication: PARKINSON^S DISEASE
     Dosage: 274 MG, 1X/DAY IN THE PM
     Route: 048
     Dates: start: 20180707, end: 201808
  6. GOCOVRI [Suspect]
     Active Substance: AMANTADINE
     Dosage: 137 MG, 1X/DAY IN THE PM
     Route: 048
     Dates: start: 201808, end: 2018
  7. ASPIRIN. [Concomitant]
     Active Substance: ASPIRIN
  8. ARESTIN [Concomitant]
     Active Substance: MINOCYCLINE HYDROCHLORIDE
  9. CARBIDOPA/LEVODOPA [Concomitant]
     Active Substance: CARBIDOPA\LEVODOPA
  10. CYANOCOBALAMIN. [Concomitant]
     Active Substance: CYANOCOBALAMIN
  11. GOCOVRI [Suspect]
     Active Substance: AMANTADINE
     Dosage: 137 MG, EVERY 48 HOURS IN THE PM
     Route: 048
     Dates: start: 2018
  12. MIRTAZAPINE. [Suspect]
     Active Substance: MIRTAZAPINE
  13. ATORVASTATIN [Concomitant]
     Active Substance: ATORVASTATIN
  14. DOXYCYCL HYCLATE [Concomitant]
  15. CARBIDOPA/LEVODOPA [Concomitant]
     Active Substance: CARBIDOPA\LEVODOPA

REACTIONS (8)
  - Amnesia [Not Recovered/Not Resolved]
  - Hot flush [Not Recovered/Not Resolved]
  - Feeling abnormal [Unknown]
  - Intentional underdose [Not Recovered/Not Resolved]
  - Dizziness [Not Recovered/Not Resolved]
  - Agitation [Not Recovered/Not Resolved]
  - Tachyphrenia [Recovering/Resolving]
  - Product dose omission [Recovered/Resolved]

NARRATIVE: CASE EVENT DATE: 2018
